FAERS Safety Report 7199269-2 (Version None)
Quarter: 2010Q4

REPORT INFORMATION
  Report Type: 
  Country: None (occurrence: None)
  Receive Date: 20101223
  Receipt Date: 20101223
  Transmission Date: 20110411
  Serious: Yes (Hospitalization, Disabling)
  Sender: FDA-Public Use
  Company Number: None

PATIENT
  Sex: Female
  Weight: 53.5244 kg

DRUGS (1)
  1. BONIVA [Suspect]
     Dosage: 150 MG 1 MONTHLY
     Dates: start: 19770101, end: 20100101

REACTIONS (6)
  - ANKLE FRACTURE [None]
  - ARTHRALGIA [None]
  - FALL [None]
  - JOINT SPRAIN [None]
  - OSTEONECROSIS [None]
  - TOOTH DISORDER [None]
